FAERS Safety Report 4579010-X (Version None)
Quarter: 2005Q1

REPORT INFORMATION
  Report Type: 
  Country: None (occurrence: None)
  Receive Date: 20050119
  Receipt Date: 20040609
  Transmission Date: 20050727
  Serious: Yes (Hospitalization)
  Sender: FDA-Public Use
  Company Number: A03200401853

PATIENT
  Age: 73 Year
  Sex: Female
  Weight: 53.5244 kg

DRUGS (6)
  1. PLAVIX [Suspect]
     Indication: CORONARY ARTERY SURGERY
     Dosage: 75 MG QD - ORAL
     Route: 048
     Dates: start: 20040301, end: 20040729
  2. PLAVIX [Suspect]
     Indication: HEART VALVE REPLACEMENT
     Dosage: 75 MG QD - ORAL
     Route: 048
     Dates: start: 20040301, end: 20040729
  3. ACETYLSALICYLIC ACID SRT [Concomitant]
  4. ANTIHYPERTENSIVE [Concomitant]
  5. PRAVASTATIN SODIUM [Concomitant]
  6. OXYCODONE [Concomitant]

REACTIONS (4)
  - BLOOD URINE [None]
  - HAEMATOCRIT DECREASED [None]
  - HAEMOGLOBIN DECREASED [None]
  - POST PROCEDURAL HAEMORRHAGE [None]
